FAERS Safety Report 21001206 (Version 1)
Quarter: 2022Q2

REPORT INFORMATION
  Report Type: Spontaneous
  Country: US (occurrence: US)
  Receive Date: 20220624
  Receipt Date: 20220624
  Transmission Date: 20220721
  Serious: No
  Sender: FDA-Public Use
  Company Number: US-BioHaven Pharmaceuticals-2022BHV000835

PATIENT
  Age: 39 Year
  Sex: Female
  Weight: 59.020 kg

DRUGS (5)
  1. NURTEC ODT [Suspect]
     Active Substance: RIMEGEPANT SULFATE
     Indication: Migraine
     Dosage: 1 TAB EVERY OTHER DAY
     Route: 048
     Dates: start: 20220226
  2. NURTEC ODT [Suspect]
     Active Substance: RIMEGEPANT SULFATE
     Indication: Migraine prophylaxis
  3. DRAMAMINE [Concomitant]
     Active Substance: DIMENHYDRINATE
     Indication: Motion sickness
     Route: 065
  4. DRAMAMINE [Concomitant]
     Active Substance: DIMENHYDRINATE
     Indication: Dizziness
  5. VITAMINS [Concomitant]
     Active Substance: VITAMINS
     Indication: Product used for unknown indication
     Route: 065

REACTIONS (1)
  - Therapeutic product effect incomplete [Unknown]

NARRATIVE: CASE EVENT DATE: 20220320
